FAERS Safety Report 20645354 (Version 1)
Quarter: 2022Q1

REPORT INFORMATION
  Report Type: Spontaneous
  Country: JP (occurrence: JP)
  Receive Date: 20220328
  Receipt Date: 20220328
  Transmission Date: 20220423
  Serious: Yes (Other)
  Sender: FDA-Public Use
  Company Number: JP-Eisai-202113416_LUN_P_1

PATIENT
  Age: 36 Year
  Sex: Female

DRUGS (1)
  1. LUNESTA [Suspect]
     Active Substance: ESZOPICLONE
     Dosage: UNK (DOSE UNKNOWN)
     Route: 048
     Dates: start: 201908, end: 201908

REACTIONS (1)
  - Drug-induced liver injury [Unknown]
